FAERS Safety Report 15195892 (Version 1)
Quarter: 2018Q3

REPORT INFORMATION
  Report Type: Spontaneous
  Country: US (occurrence: US)
  Receive Date: 20180725
  Receipt Date: 20180725
  Transmission Date: 20181010
  Serious: No
  Sender: FDA-Public Use
  Company Number: US-PFIZER INC-2018297785

PATIENT
  Age: 68 Year
  Sex: Female

DRUGS (1)
  1. IBRANCE [Suspect]
     Active Substance: PALBOCICLIB
     Indication: CARDIAC FAILURE
     Dosage: 125 MG, CYCLIC (EVERY DAY FOR 21 DAYS AND THEN 7DAYS OFF)
     Route: 048
     Dates: start: 20180719

REACTIONS (2)
  - Muscle spasms [Unknown]
  - Product use in unapproved indication [Unknown]

NARRATIVE: CASE EVENT DATE: 20180719
